FAERS Safety Report 9869611 (Version 4)
Quarter: 2014Q2

REPORT INFORMATION
  Report Type: Spontaneous
  Country: IT (occurrence: None)
  Receive Date: 20140131
  Receipt Date: 20140401
  Transmission Date: 20141212
  Serious: Yes (Hospitalization)
  Sender: FDA-Public Use
  Company Number: AUR-APL-2014-00758

PATIENT
  Age: 89 Year
  Sex: Female

DRUGS (8)
  1. LEVOFLOXACIN [Suspect]
     Indication: URINARY TRACT INFECTION
     Dosage: (500 MG,1 D)
     Route: 048
     Dates: start: 20131121, end: 20131124
  2. DEURSIL (URSODEOXYCHOLIC ACID) [Concomitant]
  3. NORMIX (RIFAXIMIN) [Concomitant]
  4. ACEQUIDE (GEZOR) [Concomitant]
  5. PANTOPAN (PANTOPRAZOLE SODIUM SESQUIHYDRATE) [Concomitant]
  6. CARDURA (DOXAZOSIN MESILATE) [Concomitant]
  7. LASIX (FUROSEMIDE) [Concomitant]
  8. ACETYLSALICYLIC ACID (ACETYLSALICYLIC ACID) [Concomitant]

REACTIONS (6)
  - Confusional state [None]
  - Disorientation [None]
  - Hallucination, visual [None]
  - Dehydration [None]
  - Blood creatine increased [None]
  - Cholelithiasis [None]
